FAERS Safety Report 11617330 (Version 2)
Quarter: 2015Q4

REPORT INFORMATION
  Report Type: Spontaneous
  Country: US (occurrence: US)
  Receive Date: 20151009
  Receipt Date: 20151123
  Transmission Date: 20160304
  Serious: No
  Sender: FDA-Public Use
  Company Number: US-ROXANE LABORATORIES, INC.-2015-RO-01658RO

PATIENT
  Age: 60 Year
  Sex: Male

DRUGS (4)
  1. LOSARTAN. [Concomitant]
     Active Substance: LOSARTAN
     Indication: HYPERTENSION
     Route: 065
  2. BUTORPHANOL [Suspect]
     Active Substance: BUTORPHANOL
     Indication: SINUSITIS
  3. BUTORPHANOL [Suspect]
     Active Substance: BUTORPHANOL
     Indication: SINUS HEADACHE
     Route: 045
     Dates: start: 201509
  4. METOPROLOL [Concomitant]
     Active Substance: METOPROLOL
     Indication: HYPERTENSION
     Route: 065

REACTIONS (5)
  - Anxiety [Recovered/Resolved]
  - Somnolence [Recovered/Resolved]
  - Confusional state [Recovered/Resolved]
  - Product quality issue [Unknown]
  - Drug ineffective [Unknown]
